FAERS Safety Report 6412760-9 (Version None)
Quarter: 2009Q4

REPORT INFORMATION
  Report Type: 
  Country: None (occurrence: None)
  Receive Date: 20091023
  Receipt Date: 20091022
  Transmission Date: 20100525
  Serious: Yes (Other)
  Sender: FDA-Public Use
  Company Number: US-ABBOTT-09P-163-0594127-00

PATIENT
  Sex: Male
  Weight: 3.632 kg

DRUGS (4)
  1. HUMIRA [Suspect]
     Indication: DRUG EXPOSURE DURING PREGNANCY
     Route: 064
  2. SIMILAC ADVANCE FORMULA [Suspect]
     Indication: MEDICAL DIET
     Route: 048
  3. ISOMIL FORMULA [Suspect]
     Indication: MEDICAL DIET
     Route: 048
  4. ALIMENTUM FORMULA [Suspect]
     Indication: MEDICAL DIET
     Route: 048

REACTIONS (8)
  - BREECH PRESENTATION [None]
  - CONSTIPATION [None]
  - DRUG EXPOSURE DURING PREGNANCY [None]
  - DRUG EXPOSURE VIA BREAST MILK [None]
  - IRRITABILITY [None]
  - NORMAL NEWBORN [None]
  - RASH [None]
  - VOMITING PROJECTILE [None]
